FAERS Safety Report 4379605-2 (Version None)
Quarter: 2004Q2

REPORT INFORMATION
  Report Type: 
  Country: None (occurrence: None)
  Receive Date: 20040614
  Receipt Date: 20040601
  Transmission Date: 20050107
  Serious: Yes (Other)
  Sender: FDA-Public Use
  Company Number: PT-JNJFOC-20040600449

PATIENT
  Sex: Male

DRUGS (1)
  1. REMICADE [Suspect]
     Indication: PSORIATIC ARTHROPATHY
     Dosage: SEE IMAGE
     Route: 042
     Dates: start: 20030501

REACTIONS (4)
  - CHEST DISCOMFORT [None]
  - PALPITATIONS [None]
  - SEDATION [None]
  - TREMOR [None]
